FAERS Safety Report 23064801 (Version 1)
Quarter: 2023Q4

REPORT INFORMATION
  Report Type: Spontaneous
  Country: IR (occurrence: IR)
  Receive Date: 20231013
  Receipt Date: 20231013
  Transmission Date: 20240110
  Serious: Yes (Other)
  Sender: FDA-Public Use
  Company Number: IR-TRIS PHARMA, INC.-23IR011110

PATIENT

DRUGS (1)
  1. SILDENAFIL [Suspect]
     Active Substance: SILDENAFIL
     Indication: Product used for unknown indication
     Dosage: 100 MILLIGRAM

REACTIONS (4)
  - Retinal vein occlusion [Unknown]
  - Retinal artery occlusion [Unknown]
  - Blindness [Unknown]
  - Off label use [Unknown]
